APPROVED DRUG PRODUCT: SINEMET CR
Active Ingredient: CARBIDOPA; LEVODOPA
Strength: 25MG;100MG **Federal Register determination that product was not discontinued or withdrawn for safety or effectiveness reasons**
Dosage Form/Route: TABLET, EXTENDED RELEASE;ORAL
Application: N019856 | Product #002
Applicant: ORGANON LLC
Approved: Dec 24, 1992 | RLD: Yes | RS: No | Type: DISCN